FAERS Safety Report 5432812-X (Version None)
Quarter: 2007Q3

REPORT INFORMATION
  Report Type: 
  Country: None (occurrence: None)
  Receive Date: 20070831
  Receipt Date: 20070711
  Transmission Date: 20080115
  Serious: No
  Sender: FDA-Public Use
  Company Number: A0662700A

PATIENT
  Age: 44 Year
  Sex: Female

DRUGS (2)
  1. ALLI [Suspect]
     Dates: start: 20070708
  2. THYROID TAB [Concomitant]

REACTIONS (2)
  - FAECES HARD [None]
  - HEADACHE [None]
